FAERS Safety Report 6519804-4 (Version None)
Quarter: 2009Q4

REPORT INFORMATION
  Report Type: 
  Country: None (occurrence: None)
  Receive Date: 20091228
  Receipt Date: 20091228
  Transmission Date: 20100525
  Serious: No
  Sender: FDA-Public Use
  Company Number: None

PATIENT
  Age: 51 Year
  Sex: Female

DRUGS (2)
  1. VARENICLINE [Suspect]
     Indication: SMOKING CESSATION THERAPY
     Dosage: 1 MG BID PO
     Route: 048
     Dates: start: 20090930, end: 20091013
  2. INSULIN [Suspect]
     Indication: DIABETES MELLITUS
     Dosage: 30 UNITS HS SQ
     Route: 058
     Dates: start: 20090128

REACTIONS (1)
  - HYPOGLYCAEMIA [None]
